FAERS Safety Report 7402311-4 (Version None)
Quarter: 2011Q2

REPORT INFORMATION
  Report Type: 
  Country: None (occurrence: None)
  Receive Date: 20110408
  Receipt Date: 20110405
  Transmission Date: 20111010
  Serious: Yes (Other)
  Sender: FDA-Public Use
  Company Number: US-SANOFI-AVENTIS-2011SA015858

PATIENT
  Age: 75 Year
  Sex: Male
  Weight: 87.72 kg

DRUGS (4)
  1. METOPROLOL SUCCINATE [Concomitant]
     Indication: ATRIAL FIBRILLATION
     Dates: start: 20050101
  2. MULTAQ [Suspect]
     Indication: ATRIAL FIBRILLATION
     Route: 048
     Dates: start: 20091001, end: 20110101
  3. MULTAQ [Suspect]
     Route: 048
     Dates: start: 20110101
  4. COUMADIN [Concomitant]
     Indication: ATRIAL FIBRILLATION
     Dates: start: 20050101

REACTIONS (3)
  - INCORRECT DOSE ADMINISTERED [None]
  - ATRIAL FIBRILLATION [None]
  - DRUG INEFFECTIVE [None]
